FAERS Safety Report 25225249 (Version 1)
Quarter: 2025Q2

REPORT INFORMATION
  Report Type: Spontaneous
  Country: JP (occurrence: JP)
  Receive Date: 20250422
  Receipt Date: 20250422
  Transmission Date: 20250717
  Serious: Yes (Hospitalization, Other)
  Sender: PFIZER
  Company Number: JP-PFIZER INC-PV202500017434

PATIENT
  Age: 58 Year
  Sex: Female

DRUGS (14)
  1. ELREXFIO [Suspect]
     Active Substance: ELRANATAMAB-BCMM
     Indication: Plasma cell myeloma
     Dosage: 12 MG, 1X/DAY
     Route: 058
     Dates: start: 20240701, end: 20240701
  2. ELREXFIO [Suspect]
     Active Substance: ELRANATAMAB-BCMM
     Route: 058
     Dates: start: 20240705, end: 20240705
  3. ELREXFIO [Suspect]
     Active Substance: ELRANATAMAB-BCMM
     Route: 058
     Dates: start: 20240709
  4. AMENAMEVIR [Concomitant]
     Active Substance: AMENAMEVIR
     Indication: Antiviral treatment
     Dosage: 2 DF, 1X/DAY
  5. FENTANYL [Concomitant]
     Active Substance: FENTANYL
     Indication: Pain
     Dosage: TAPE, 2 MG, DAILY
  6. DAYVIGO [Concomitant]
     Active Substance: LEMBOREXANT
     Dosage: 1 DF, 1X/DAY
  7. VONOPRAZAN FUMARATE [Concomitant]
     Active Substance: VONOPRAZAN FUMARATE
     Dosage: 1 DF, 1X/DAY
  8. SPIRONOLACTONE [Concomitant]
     Active Substance: SPIRONOLACTONE
     Dosage: 1 DF, 1X/DAY
  9. FEBUXOSTAT [Concomitant]
     Active Substance: FEBUXOSTAT
     Dosage: 1 DF, 1X/DAY
  10. MIANSERIN [Concomitant]
     Active Substance: MIANSERIN
     Dosage: 1 DF, 1X/DAY
  11. ACETAMINOPHEN [Concomitant]
     Active Substance: ACETAMINOPHEN
     Dosage: 1 DF, 4X/DAY
  12. ACETAMINOPHEN [Concomitant]
     Active Substance: ACETAMINOPHEN
     Indication: Premedication
  13. DEXAMETHASONE [Concomitant]
     Active Substance: DEXAMETHASONE
     Indication: Premedication
  14. DIPHENHYDRAMINE [Concomitant]
     Active Substance: DIPHENHYDRAMINE
     Indication: Premedication

REACTIONS (6)
  - Cytomegalovirus infection [Recovered/Resolved]
  - Cytokine release syndrome [Not Recovered/Not Resolved]
  - Cytomegalovirus infection reactivation [Not Recovered/Not Resolved]
  - White blood cell count increased [Unknown]
  - C-reactive protein increased [Unknown]
  - Vomiting [Unknown]

NARRATIVE: CASE EVENT DATE: 20240704
